FAERS Safety Report 5150518-1 (Version None)
Quarter: 2006Q4

REPORT INFORMATION
  Report Type: 
  Country: None (occurrence: None)
  Receive Date: 20061114
  Receipt Date: 20060912
  Transmission Date: 20070319
  Serious: Yes (Hospitalization)
  Sender: FDA-Public Use
  Company Number: JP-SP-2006-02433

PATIENT
  Age: 69 Year
  Sex: Male

DRUGS (6)
  1. IMMUCYST [Suspect]
     Indication: BLADDER CANCER
     Dosage: 3 TIMES 81 MG THEN 3 TIMES 40 MG
     Route: 043
     Dates: start: 20060424, end: 20060529
  2. IMMUCYST [Suspect]
     Dosage: 3 TIMES 81 MG THEN 3 TIMES 40 MG
     Route: 043
     Dates: start: 20060424, end: 20060529
  3. IMMUCYST [Suspect]
     Dosage: 3 TIMES 81 MG THEN 3 TIMES 40 MG
     Route: 043
     Dates: start: 20060424, end: 20060529
  4. CIPROFLOXACIN HYDROCHLORIDE [Concomitant]
     Dosage: 200 MG X 4
     Dates: start: 20060605, end: 20060611
  5. LEVOFLOXACIN [Concomitant]
     Dosage: 100 MG X 6
     Dates: start: 20060529, end: 20060530
  6. LOXOPROFEN SODIUM [Concomitant]
     Dosage: 60 MG X 10
     Dates: start: 20060605, end: 20060611

REACTIONS (13)
  - ALANINE AMINOTRANSFERASE INCREASED [None]
  - ARTHRALGIA [None]
  - ARTHRITIS [None]
  - ASPARTATE AMINOTRANSFERASE INCREASED [None]
  - BLOOD ALKALINE PHOSPHATASE INCREASED [None]
  - BLOOD BILIRUBIN INCREASED [None]
  - CONJUNCTIVITIS [None]
  - CYSTITIS [None]
  - GAMMA-GLUTAMYLTRANSFERASE INCREASED [None]
  - INCORRECT DOSE ADMINISTERED [None]
  - JOINT SWELLING [None]
  - LIVER DISORDER [None]
  - REITER'S SYNDROME [None]
